FAERS Safety Report 9522054 (Version 1)
Quarter: 2013Q1

REPORT INFORMATION
  Report Type: Spontaneous
  Country: US (occurrence: None)
  Receive Date: 20130305
  Receipt Date: 20130305
  Transmission Date: 20140127
  Serious: Yes (Other)
  Sender: FDA-Public Use
  Company Number: 163-21880-12070948

PATIENT
  Age: 82 Year
  Sex: Female

DRUGS (15)
  1. REVLIMID (LENALIDOMIDE) (CAPSULES) [Suspect]
     Indication: MYELODYSPLASTIC SYNDROME
     Dosage: 15 MG, 14 IN 14 D, PO
     Dates: start: 200901
  2. ACYCLOVIR(ACICLOVIR)(TABLETS) [Concomitant]
  3. METOPROLOL TARTRATE(METOPROLOL TARTRATE)(UNKNOWN) [Concomitant]
  4. FUROSEMIDE(FUROSEMIDE)(TABLETS) [Concomitant]
  5. PROAIR(FLUTICASONE PROPIONATE)(INHALANT) [Concomitant]
  6. DEXAMETHASONE(DEXAMETHASONE)(TABLETS) [Concomitant]
  7. LEVOTHYROXINE(LEVOTHYROXINE)(UNKNOWN) [Concomitant]
  8. PLAVIX(CLOPIDOGREL SULFATE)(TABLETS) [Concomitant]
  9. VYTORIN(INEGY)(TABLETS) [Concomitant]
  10. PENICILLIN VK(PHENOXYMETHYLPENICILLIN POTASSIUM)(TABLETS) [Concomitant]
  11. WARFARIN SODIUM(WARFARIN SODIUM)(TABLETS) [Concomitant]
  12. PROPDXYPHENE-N(DEXTROPROPDXYPHENE HYDROCHLORIDE)(UNKNOWN) [Concomitant]
  13. CEPHALEXIN(CEFALEXIN)(CAPSULES) [Concomitant]
  14. METROPROLOL ER SUCCINATE(METOPROLOL SUCCINATE)(UNKNOWN) [Concomitant]
  15. PROCHLORPERAZINE(PROCHLORPERAZINE) (TABLETS) [Concomitant]

REACTIONS (1)
  - General physical health deterioration [None]
